FAERS Safety Report 8021237-9 (Version None)
Quarter: 2011Q4

REPORT INFORMATION
  Report Type: 
  Country: None (occurrence: None)
  Receive Date: 20111229
  Receipt Date: 20110208
  Transmission Date: 20120403
  Serious: Yes (Hospitalization, Other)
  Sender: FDA-Public Use
  Company Number: US-BIOTEST-T 46/11

PATIENT

DRUGS (5)
  1. PROGRAF [Concomitant]
  2. NORVASC [Concomitant]
  3. LASIX [Concomitant]
  4. PREDNISONE TAB [Concomitant]
  5. NABI-HB [Suspect]
     Dosage: 10,000 IU, INTRAVENOUS
     Route: 042
     Dates: start: 20090601, end: 20101228

REACTIONS (1)
  - RENAL FAILURE [None]
